FAERS Safety Report 6583688-9 (Version None)
Quarter: 2010Q1

REPORT INFORMATION
  Report Type: 
  Country: None (occurrence: None)
  Receive Date: 20100213
  Receipt Date: 20100213
  Transmission Date: 20100710
  Serious: No
  Sender: FDA-Public Use
  Company Number: None

PATIENT
  Age: 16 Year
  Sex: Male
  Weight: 73.4827 kg

DRUGS (5)
  1. OLANZAPINE [Suspect]
     Indication: AGITATION
     Dosage: 5 MG IM
     Route: 030
     Dates: start: 20091209, end: 20091209
  2. LITHIUM CARBONATE [Concomitant]
  3. RISPERIDONE [Concomitant]
  4. FLUOXETINE [Concomitant]
  5. AMPHETAMINE XR [Concomitant]

REACTIONS (3)
  - BRADYCARDIA [None]
  - HYPOTENSION [None]
  - SEDATION [None]
